FAERS Safety Report 5770466-3 (Version None)
Quarter: 2008Q2

REPORT INFORMATION
  Report Type: 
  Country: None (occurrence: None)
  Receive Date: 20080613
  Receipt Date: 20080505
  Transmission Date: 20081010
  Serious: No
  Sender: FDA-Public Use
  Company Number: US-ABBOTT-08P-163-0450315-00

PATIENT
  Sex: Female
  Weight: 90.8 kg

DRUGS (1)
  1. HUMIRA [Suspect]
     Indication: CROHN'S DISEASE
     Route: 058
     Dates: start: 20080401

REACTIONS (6)
  - INCREASED APPETITE [None]
  - INSOMNIA [None]
  - LISTLESS [None]
  - MOOD SWINGS [None]
  - MUSCLE SPASMS [None]
  - WEIGHT INCREASED [None]
